FAERS Safety Report 23013514 (Version 1)
Quarter: 2023Q4

REPORT INFORMATION
  Report Type: Spontaneous
  Country: US (occurrence: US)
  Receive Date: 20231001
  Receipt Date: 20231001
  Transmission Date: 20240110
  Serious: No
  Sender: FDA-Public Use
  Company Number: US-SA-SAC20230926000175

PATIENT
  Age: 40 Year
  Sex: Male
  Weight: 100.69 kg

DRUGS (2)
  1. DUPIXENT [Suspect]
     Active Substance: DUPILUMAB
     Indication: Dermatitis atopic
     Dosage: 300 MG, QOW
     Route: 058
     Dates: end: 202307
  2. ADBRY [Suspect]
     Active Substance: TRALOKINUMAB-LDRM
     Indication: Dermatitis atopic
     Dosage: UNK
     Dates: start: 20230818

REACTIONS (9)
  - Dermatitis atopic [Unknown]
  - Skin exfoliation [Unknown]
  - Sunburn [Unknown]
  - Rash pruritic [Unknown]
  - Injection site pain [Recovered/Resolved]
  - Middle insomnia [Unknown]
  - Skin fissures [Unknown]
  - Dry skin [Unknown]
  - Drug ineffective [Unknown]

NARRATIVE: CASE EVENT DATE: 20230801
